FAERS Safety Report 8352107-4 (Version None)
Quarter: 2012Q2

REPORT INFORMATION
  Report Type: 
  Country: None (occurrence: None)
  Receive Date: 20120511
  Receipt Date: 20120503
  Transmission Date: 20120825
  Serious: Yes (Other)
  Sender: FDA-Public Use
  Company Number: BR-BAYER-2012-044310

PATIENT
  Sex: Male
  Weight: 3 kg

DRUGS (2)
  1. YASMIN [Suspect]
     Dosage: UNK
     Route: 064
     Dates: start: 20070101, end: 20110703
  2. METHYLDOPA [Concomitant]
     Dosage: UNK UNK, TID
     Route: 064
     Dates: start: 20110628, end: 20120129

REACTIONS (3)
  - PREMATURE BABY [None]
  - SKIN DISCOLOURATION [None]
  - POOR SUCKING REFLEX [None]
